FAERS Safety Report 11976041 (Version 1)
Quarter: 2016Q1

REPORT INFORMATION
  Report Type: Spontaneous
  Country: US (occurrence: US)
  Receive Date: 20160129
  Receipt Date: 20160129
  Transmission Date: 20160526
  Serious: Yes (Other)
  Sender: FDA-Public Use
  Company Number: US-BEH-2016058006

PATIENT
  Sex: Female
  Weight: 129 kg

DRUGS (28)
  1. HIZENTRA [Suspect]
     Active Substance: HUMAN IMMUNOGLOBULIN G
     Indication: IMMUNODEFICIENCY COMMON VARIABLE
     Dosage: 10 GM 50 ML VIALS
     Route: 058
  2. LEVAQUIN [Concomitant]
     Active Substance: LEVOFLOXACIN
  3. CLOZAPINE. [Concomitant]
     Active Substance: CLOZAPINE
  4. PROTONIX [Concomitant]
     Active Substance: PANTOPRAZOLE SODIUM
  5. EPIPEN [Concomitant]
     Active Substance: EPINEPHRINE
  6. VITAMIN D3 [Concomitant]
     Active Substance: CHOLECALCIFEROL
  7. DIPHENHYDRAMINE. [Concomitant]
     Active Substance: DIPHENHYDRAMINE
  8. PENICILLIN [Concomitant]
     Active Substance: PENICILLIN
  9. CYMBALTA [Concomitant]
     Active Substance: DULOXETINE HYDROCHLORIDE
  10. PROVENTIL [Concomitant]
     Active Substance: ALBUTEROL
  11. CLONAZEPAM. [Concomitant]
     Active Substance: CLONAZEPAM
  12. MIRALAX [Concomitant]
     Active Substance: POLYETHYLENE GLYCOL 3350
  13. CALCIUM + VITAMIN D [Concomitant]
     Active Substance: CALCIUM\VITAMIN D
  14. SYNTHROID [Concomitant]
     Active Substance: LEVOTHYROXINE SODIUM
  15. NORCO [Concomitant]
     Active Substance: ACETAMINOPHEN\HYDROCODONE BITARTRATE
  16. IMITREX [Concomitant]
     Active Substance: SUMATRIPTAN SUCCINATE
  17. ACETAMINOPHEN. [Concomitant]
     Active Substance: ACETAMINOPHEN
  18. GAS-X [Concomitant]
     Active Substance: DIMETHICONE
  19. NYSTATIN. [Concomitant]
     Active Substance: NYSTATIN
  20. COMPLETE MULTIVITAMINS [Concomitant]
  21. HIZENTRA [Suspect]
     Active Substance: HUMAN IMMUNOGLOBULIN G
     Dosage: 4 GM 20 ML VIALS
     Route: 058
  22. FLEXERIL [Concomitant]
     Active Substance: CYCLOBENZAPRINE HYDROCHLORIDE
  23. AVAPRO [Concomitant]
     Active Substance: IRBESARTAN
  24. LIDOCAINE. [Concomitant]
     Active Substance: LIDOCAINE
  25. ALSUMA [Concomitant]
     Active Substance: SUMATRIPTAN SUCCINATE
  26. VERELAN [Concomitant]
     Active Substance: VERAPAMIL HYDROCHLORIDE
  27. ZOFRAN [Concomitant]
     Active Substance: ONDANSETRON HYDROCHLORIDE
  28. FOLIC ACID. [Concomitant]
     Active Substance: FOLIC ACID

REACTIONS (1)
  - Kidney infection [Unknown]
